FAERS Safety Report 9134035 (Version 1)
Quarter: 2013Q1

REPORT INFORMATION
  Report Type: Spontaneous
  Country: DE (occurrence: DE)
  Receive Date: 20130304
  Receipt Date: 20130304
  Transmission Date: 20140127
  Serious: Yes (Other)
  Sender: FDA-Public Use
  Company Number: DE-009507513-1303DEU000028

PATIENT
  Age: 16 Year
  Sex: Female

DRUGS (1)
  1. MAXALT [Suspect]
     Indication: MIGRAINE
     Dosage: UNK
     Route: 048
     Dates: start: 201301, end: 201301

REACTIONS (5)
  - Myalgia [Not Recovered/Not Resolved]
  - Myositis [Not Recovered/Not Resolved]
  - Depressed level of consciousness [Not Recovered/Not Resolved]
  - Drug administered to patient of inappropriate age [Unknown]
  - Blood creatine phosphokinase increased [Not Recovered/Not Resolved]
